FAERS Safety Report 7103884-1 (Version None)
Quarter: 2010Q4

REPORT INFORMATION
  Report Type: 
  Country: None (occurrence: None)
  Receive Date: 20101115
  Receipt Date: 20101105
  Transmission Date: 20110411
  Serious: Yes (Death)
  Sender: FDA-Public Use
  Company Number: PHHY2010JP37813

PATIENT
  Sex: Male

DRUGS (7)
  1. ZOLEDRONATE T29581+ [Suspect]
     Indication: METASTASES TO BONE
     Dosage: 4 MG EVERY 4 WEEK
     Route: 041
     Dates: start: 20080325, end: 20081121
  2. TS 1 [Concomitant]
     Dosage: 100 MG, UNK
     Route: 048
     Dates: start: 20080325, end: 20080627
  3. CISPLATIN [Concomitant]
     Dosage: 81 MG, UNK
     Dates: start: 20080401, end: 20080613
  4. TAXOL [Concomitant]
     Dosage: 94 MG, UNK
     Dates: start: 20080711, end: 20081003
  5. CAMPTOSAR [Concomitant]
     Dosage: 63 MG, UNK
     Dates: start: 20081020, end: 20081104
  6. MORPHINE HYDROCHLORIDE [Concomitant]
     Dosage: 12.5 MG, UNK
     Dates: start: 20081128, end: 20081130
  7. OXYCONTIN [Concomitant]
     Dosage: 10 MG, UNK
     Route: 048
     Dates: start: 20081008, end: 20081028

REACTIONS (2)
  - MALIGNANT NEOPLASM PROGRESSION [None]
  - METASTATIC GASTRIC CANCER [None]
